FAERS Safety Report 24462075 (Version 2)
Quarter: 2024Q4

REPORT INFORMATION
  Report Type: Spontaneous
  Country: US (occurrence: US)
  Receive Date: 20241018
  Receipt Date: 20241220
  Transmission Date: 20250115
  Serious: No
  Sender: UCB
  Company Number: US-UCBSA-2024039310

PATIENT
  Sex: Female
  Weight: 68.027 kg

DRUGS (1)
  1. BIMZELX [Suspect]
     Active Substance: BIMEKIZUMAB-BKZX
     Indication: Psoriasis
     Dosage: 320 MILLIGRAM, EV 4 WEEKS
     Route: 058
     Dates: start: 202406

REACTIONS (8)
  - Headache [Unknown]
  - Swelling [Unknown]
  - Migraine [Unknown]
  - Gastrointestinal disorder [Unknown]
  - Therapy interrupted [Unknown]
  - Product availability issue [Unknown]
  - Product dose omission issue [Unknown]
  - Insurance issue [Unknown]
